FAERS Safety Report 8304642 (Version 8)
Quarter: 2016Q3

REPORT INFORMATION
  Report Type: Report from Study
  Country: GB (occurrence: GB)
  Receive Date: 20111221
  Receipt Date: 20160701
  Transmission Date: 20161109
  Serious: Yes (Life-Threatening, Hospitalization)
  Sender: FDA-Public Use
  Company Number: GB-JNJFOC-20111204913

PATIENT
  Age: 11 Year
  Sex: Male
  Weight: 30 kg

DRUGS (14)
  1. GENTAMICIN. [Concomitant]
     Active Substance: GENTAMICIN
  2. METHYLPREDNISOLONE. [Concomitant]
     Active Substance: METHYLPREDNISOLONE
  3. BENZYLPENICILLIN [Concomitant]
     Active Substance: PENICILLIN G
  4. AMOXICILLIN. [Concomitant]
     Active Substance: AMOXICILLIN
  5. MORPHINE [Concomitant]
     Active Substance: MORPHINE
  6. METRONIDAZOLE. [Concomitant]
     Active Substance: METRONIDAZOLE
  7. CIPROFLOXACIN. [Concomitant]
     Active Substance: CIPROFLOXACIN
  8. MEROPENEM. [Concomitant]
     Active Substance: MEROPENEM
  9. VANCOMYCIN [Concomitant]
     Active Substance: VANCOMYCIN
  10. PIPERACILLIN [Concomitant]
     Active Substance: PIPERACILLIN
  11. PARACETAMOL [Concomitant]
     Active Substance: ACETAMINOPHEN
  12. INFLIXIMAB, RECOMBINANT [Suspect]
     Active Substance: INFLIXIMAB
     Indication: INFLAMMATORY BOWEL DISEASE
     Route: 042
     Dates: start: 20100219, end: 20100317
  13. TAZOCIN [Concomitant]
     Active Substance: PIPERACILLIN SODIUM\TAZOBACTAM SODIUM
  14. PREDNISOLONE. [Concomitant]
     Active Substance: PREDNISOLONE

REACTIONS (3)
  - Pneumothorax [Recovered/Resolved]
  - Postoperative wound infection [Recovered/Resolved]
  - Acute respiratory distress syndrome [Recovered/Resolved]

NARRATIVE: CASE EVENT DATE: 20111124
